FAERS Safety Report 25849498 (Version 1)
Quarter: 2025Q3

REPORT INFORMATION
  Report Type: Spontaneous
  Country: JP (occurrence: JP)
  Receive Date: 20250926
  Receipt Date: 20250926
  Transmission Date: 20251020
  Serious: Yes (Hospitalization, Other)
  Sender: RECORDATI
  Company Number: JP-RECORDATI RARE DISEASE INC.-2025006792

PATIENT
  Sex: Male
  Weight: 1.444 kg

DRUGS (2)
  1. IBUPROFEN [Suspect]
     Active Substance: IBUPROFEN
     Indication: Patent ductus arteriosus
     Route: 065
  2. PENICILLIN G [Concomitant]
     Active Substance: PENICILLIN G
     Indication: Congenital syphilis

REACTIONS (6)
  - Cardiac failure congestive [Unknown]
  - Cerebral ventricle dilatation [Unknown]
  - Cerebral ischaemia [Unknown]
  - Cerebellar atrophy [Unknown]
  - Motor developmental delay [Unknown]
  - Drug ineffective [Recovered/Resolved]
